FAERS Safety Report 23465935 (Version 1)
Quarter: 2024Q1

REPORT INFORMATION
  Report Type: Spontaneous
  Country: IT (occurrence: IT)
  Receive Date: 20240201
  Receipt Date: 20240201
  Transmission Date: 20240409
  Serious: Yes (Other)
  Sender: FDA-Public Use
  Company Number: None

PATIENT
  Age: 65 Year
  Sex: Male
  Weight: 48 kg

DRUGS (2)
  1. GEMCITABINE [Suspect]
     Active Substance: GEMCITABINE
     Indication: Pancreatic carcinoma
     Dosage: 1100 MG EVERY 1ST, 8TH AND 15TH OF EACH 28 DAY CYCLE
     Route: 042
     Dates: start: 20231116, end: 20231116
  2. ABRAXANE [Suspect]
     Active Substance: PACLITAXEL
     Indication: Pancreatic carcinoma
     Dosage: 150 MG EVERY 3 WEEKS
     Route: 042
     Dates: start: 20231116, end: 20231116

REACTIONS (2)
  - Thrombocytopenia [Not Recovered/Not Resolved]
  - Anaemia [Not Recovered/Not Resolved]

NARRATIVE: CASE EVENT DATE: 20231123
